FAERS Safety Report 21060803 (Version 1)
Quarter: 2022Q3

REPORT INFORMATION
  Report Type: Spontaneous
  Country: FR (occurrence: FR)
  Receive Date: 20220709
  Receipt Date: 20220709
  Transmission Date: 20221027
  Serious: Yes (Other)
  Sender: FDA-Public Use
  Company Number: None

PATIENT
  Age: 88 Year
  Sex: Male
  Weight: 77 kg

DRUGS (4)
  1. FUROSEMIDE [Suspect]
     Active Substance: FUROSEMIDE
     Indication: Hypertensive heart disease
     Dosage: LONG COURSE, FREQUENCY TIME: 1 DAY
  2. MIRTAZAPINE [Suspect]
     Active Substance: MIRTAZAPINE
     Indication: Depression
     Dosage: 2 TABLETS AT BEDTIME , UNIT DOSE : 30 MG , FREQUENCY TIME : 1 DAY
     Dates: start: 201911
  3. PANTOPRAZOLE [Suspect]
     Active Substance: PANTOPRAZOLE
     Indication: Gastritis
     Dosage: LONG COURSE, FREQUENCY TIME: 1 DAY, UNIT DOSE: 20 MG
  4. OLANZAPINE [Suspect]
     Active Substance: OLANZAPINE
     Indication: Obsessive thoughts
     Dosage: 2.5 MILLIGRAM DAILY; 1/2 TAB OF 5 MG, FORM STRENGTH: 5 MG, DURATION; 2 YEARS
     Dates: start: 201911, end: 20211105

REACTIONS (2)
  - Hyponatraemia [Recovering/Resolving]
  - Asthenia [Recovering/Resolving]

NARRATIVE: CASE EVENT DATE: 20191101
